FAERS Safety Report 17526274 (Version 8)
Quarter: 2021Q1

REPORT INFORMATION
  Report Type: Report from Study
  Country: FR (occurrence: FR)
  Receive Date: 20200311
  Receipt Date: 20210215
  Transmission Date: 20210419
  Serious: Yes (Hospitalization)
  Sender: FDA-Public Use
  Company Number: FR-MYLANLABS-2020M1025242

PATIENT
  Age: 71 Year
  Sex: Female

DRUGS (17)
  1. EXEMESTANE. [Suspect]
     Active Substance: EXEMESTANE
     Indication: BREAST CANCER METASTATIC
     Dosage: 25 MG, DAILY
     Dates: start: 20190307
  2. PERTUZUMAB. [Concomitant]
     Active Substance: PERTUZUMAB
     Indication: BREAST CANCER METASTATIC
     Dosage: 840 MG, CYCLIC (Q3W)
     Dates: start: 20191025
  3. PERTUZUMAB. [Concomitant]
     Active Substance: PERTUZUMAB
     Dosage: UNK
     Route: 065
     Dates: start: 20181025
  4. TRASTUZUMAB. [Concomitant]
     Active Substance: TRASTUZUMAB
     Dosage: UNK
     Route: 065
     Dates: start: 20181025
  5. AMLODIPINE [Concomitant]
     Active Substance: AMLODIPINE BESYLATE
     Indication: HYPERTENSION
     Dosage: 5 MILLIGRAM, QD, (DAILY FOR 30DAYS)
     Route: 048
     Dates: start: 20190211
  6. FUROSEMIDE. [Concomitant]
     Active Substance: FUROSEMIDE
     Indication: HYPERTENSION
     Dosage: UNK
     Route: 048
     Dates: start: 20190211
  7. PALBOCICLIB [Suspect]
     Active Substance: PALBOCICLIB
     Indication: BREAST CANCER METASTATIC
     Dosage: 125 MG, UNK
     Dates: start: 20190214
  8. PALBOCICLIB [Suspect]
     Active Substance: PALBOCICLIB
     Dosage: UNK
     Dates: start: 20190214
  9. NEFOPAM [Concomitant]
     Active Substance: NEFOPAM
     Dosage: 60 MILLIGRAM, QD, (20 MG, 3X/DAY)
     Dates: start: 20190326, end: 20190328
  10. PERTUZUMAB. [Concomitant]
     Active Substance: PERTUZUMAB
     Dosage: 420 MG, CYCLIC (Q3W)
     Dates: start: 20181025
  11. EXEMESTANE. [Suspect]
     Active Substance: EXEMESTANE
     Dosage: 25 MG, DAILY
     Dates: start: 20190308, end: 20190417
  12. TRASTUZUMAB. [Concomitant]
     Active Substance: TRASTUZUMAB
     Indication: BREAST CANCER METASTATIC
     Dosage: 8 MG/KG, CYCLIC (Q3W)
     Dates: start: 20181025
  13. FLUTICASONE. [Concomitant]
     Active Substance: FLUTICASONE
     Dosage: 500 MICROGRAM, QD, (250 UG, 2X/DAY OR 30 DAYS)
     Dates: start: 20190325, end: 20190329
  14. NEBIVOLOL. [Concomitant]
     Active Substance: NEBIVOLOL
     Indication: HYPERTENSION
     Dosage: 5 MILLIGRAM, QD, (DAILY FOR 30DAYS)
     Route: 048
     Dates: start: 20190211
  15. LETROZOLE. [Suspect]
     Active Substance: LETROZOLE
     Indication: BREAST CANCER METASTATIC
     Dosage: 2.5 MG, DAILY
     Dates: start: 20190215, end: 20190307
  16. URAPIDIL [Concomitant]
     Active Substance: URAPIDIL
     Indication: HYPERTENSION
     Dosage: 60 MILLIGRAM, QD, (30 MG, 2X/DAY FOR 30DAYS)
     Route: 048
     Dates: start: 20190211
  17. CANDESARTAN. [Concomitant]
     Active Substance: CANDESARTAN
     Dosage: 4 MILLIGRAM, QD, (4 MG, DAILY FOR 30DAYS)
     Dates: start: 20190326, end: 20190329

REACTIONS (1)
  - Arthritis [Recovered/Resolved]

NARRATIVE: CASE EVENT DATE: 20190418
